FAERS Safety Report 5022071-4 (Version None)
Quarter: 2006Q2

REPORT INFORMATION
  Report Type: 
  Country: None (occurrence: None)
  Receive Date: 20060609
  Receipt Date: 20060605
  Transmission Date: 20061013
  Serious: Yes (Life-Threatening, Hospitalization)
  Sender: FDA-Public Use
  Company Number: 2006AC01057

PATIENT
  Age: 29 Year
  Sex: Female

DRUGS (3)
  1. CANDESARTAN CILEXETIL [Suspect]
     Route: 048
  2. AMLODIPINE [Suspect]
  3. ASPIRIN [Suspect]

REACTIONS (4)
  - BRADYCARDIA [None]
  - HYPOTENSION [None]
  - INTENTIONAL OVERDOSE [None]
  - SUICIDE ATTEMPT [None]
